FAERS Safety Report 4731725-6 (Version None)
Quarter: 2005Q3

REPORT INFORMATION
  Report Type: 
  Country: None (occurrence: None)
  Receive Date: 20050725
  Receipt Date: 20040927
  Transmission Date: 20060218
  Serious: Yes (Disabling)
  Sender: FDA-Public Use
  Company Number: WAES 0306USA00853

PATIENT
  Sex: Female

DRUGS (1)
  1. VIOXX [Suspect]
     Dosage: PO
     Route: 048

REACTIONS (13)
  - ADVERSE EVENT [None]
  - ARTHRALGIA [None]
  - ARTHRITIS [None]
  - BODY TINEA [None]
  - CANDIDIASIS [None]
  - DRUG INEFFECTIVE [None]
  - FLUID RETENTION [None]
  - HYPERTENSION [None]
  - OBESITY [None]
  - OSTEOARTHRITIS [None]
  - TINEA INFECTION [None]
  - UPPER RESPIRATORY TRACT INFECTION [None]
  - URINARY TRACT INFECTION [None]
